FAERS Safety Report 4837675-9 (Version None)
Quarter: 2005Q4

REPORT INFORMATION
  Report Type: 
  Country: None (occurrence: None)
  Receive Date: 20051024
  Receipt Date: 20050825
  Transmission Date: 20060501
  Serious: No
  Sender: FDA-Public Use
  Company Number: 215813

PATIENT
  Sex: Female
  Weight: 46.3 kg

DRUGS (1)
  1. XOLAIR [Suspect]
     Indication: ASTHMA
     Dates: start: 20050531

REACTIONS (2)
  - ASTHMA [None]
  - LYMPHADENOPATHY [None]
